FAERS Safety Report 23805193 (Version 1)
Quarter: 2024Q2

REPORT INFORMATION
  Report Type: Spontaneous
  Country: US (occurrence: US)
  Receive Date: 20240502
  Receipt Date: 20240502
  Transmission Date: 20240716
  Serious: Yes (Hospitalization, Other)
  Sender: FDA-Public Use
  Company Number: US-GLAXOSMITHKLINE-US2024AMR054284

PATIENT

DRUGS (8)
  1. ALBUTEROL SULFATE [Suspect]
     Active Substance: ALBUTEROL SULFATE
     Indication: Product used for unknown indication
     Dosage: UNK
  2. FLOVENT HFA [Suspect]
     Active Substance: FLUTICASONE PROPIONATE
     Indication: Product used for unknown indication
     Dosage: UNK
  3. TYVASO DPI [Suspect]
     Active Substance: TREPROSTINIL
     Indication: Pulmonary hypertension
     Dosage: 64 UG, QID
     Route: 055
     Dates: start: 2023
  4. TYVASO DPI [Suspect]
     Active Substance: TREPROSTINIL
     Dosage: UNK
  5. OFEV [Suspect]
     Active Substance: NINTEDANIB
     Indication: Idiopathic pulmonary fibrosis
     Dosage: 100 MG, BID
     Route: 048
     Dates: start: 20230501, end: 2023
  6. OFEV [Suspect]
     Active Substance: NINTEDANIB
     Indication: Interstitial lung disease
  7. THALOMID [Suspect]
     Active Substance: THALIDOMIDE
     Indication: Product used for unknown indication
     Dosage: UNK
     Dates: start: 20230224
  8. ADVIL PM (DIPHENHYDRAMINE CITRATE\IBUPROFEN) [Suspect]
     Active Substance: DIPHENHYDRAMINE CITRATE\IBUPROFEN
     Indication: Sleep disorder
     Dosage: UNK

REACTIONS (14)
  - Cardiac discomfort [Recovering/Resolving]
  - Macular degeneration [Recovering/Resolving]
  - Decreased appetite [Not Recovered/Not Resolved]
  - Dyspnoea exertional [Not Recovered/Not Resolved]
  - Productive cough [Not Recovered/Not Resolved]
  - Constipation [Recovering/Resolving]
  - Depression [Not Recovered/Not Resolved]
  - Fatigue [Not Recovered/Not Resolved]
  - Sleep disorder [Unknown]
  - Frustration tolerance decreased [Unknown]
  - Asthenia [Unknown]
  - Dyspnoea [Unknown]
  - Lung disorder [Unknown]
  - Pain [Not Recovered/Not Resolved]
